FAERS Safety Report 5505844-0 (Version None)
Quarter: 2007Q4

REPORT INFORMATION
  Report Type: 
  Country: None (occurrence: None)
  Receive Date: 20071102
  Receipt Date: 20071022
  Transmission Date: 20080405
  Serious: Yes (Other)
  Sender: FDA-Public Use
  Company Number: US-PFIZER INC-2007089810

PATIENT
  Sex: Female
  Weight: 45 kg

DRUGS (6)
  1. CHANTIX [Suspect]
     Indication: SMOKING CESSATION THERAPY
  2. LEXAPRO [Concomitant]
     Indication: DEPRESSION
  3. LIPITOR [Concomitant]
  4. VITAMINS [Concomitant]
  5. CALCIUM [Concomitant]
  6. DRUG, UNSPECIFIED [Concomitant]

REACTIONS (2)
  - HERNIA REPAIR [None]
  - NAUSEA [None]
